FAERS Safety Report 9219008 (Version 1)
Quarter: 2013Q2

REPORT INFORMATION
  Report Type: Spontaneous
  Country: JP (occurrence: JP)
  Receive Date: 20130409
  Receipt Date: 20130409
  Transmission Date: 20140414
  Serious: Yes (Death, Hospitalization)
  Sender: FDA-Public Use
  Company Number: JP-MYLANLABS-2013S1007007

PATIENT
  Age: 47 Year
  Sex: Female

DRUGS (2)
  1. MINOCYCLINE [Suspect]
     Indication: RENAL CYST
     Route: 050
     Dates: start: 200505
  2. ALCOHOL [Suspect]
     Indication: RENAL CYST
     Dosage: 95%
     Route: 065
     Dates: start: 200511

REACTIONS (4)
  - Neoplasm recurrence [Not Recovered/Not Resolved]
  - Renal cyst [Not Recovered/Not Resolved]
  - Renal cell carcinoma [Not Recovered/Not Resolved]
  - Metastatic neoplasm [Fatal]
